FAERS Safety Report 6566827-5 (Version None)
Quarter: 2010Q1

REPORT INFORMATION
  Report Type: 
  Country: None (occurrence: None)
  Receive Date: 20100202
  Receipt Date: 20100202
  Transmission Date: 20100710
  Serious: Yes (Other)
  Sender: FDA-Public Use
  Company Number: A0841889A

PATIENT
  Sex: Female

DRUGS (1)
  1. WELLBUTRIN [Suspect]
     Indication: DRUG USE FOR UNKNOWN INDICATION
     Dosage: 450MG PER DAY
     Route: 048

REACTIONS (6)
  - ABASIA [None]
  - BEDRIDDEN [None]
  - EAR CONGESTION [None]
  - MALAISE [None]
  - MONOPLEGIA [None]
  - OEDEMA PERIPHERAL [None]
